FAERS Safety Report 7229301-9 (Version None)
Quarter: 2011Q1

REPORT INFORMATION
  Report Type: 
  Country: None (occurrence: None)
  Receive Date: 20110117
  Receipt Date: 20110113
  Transmission Date: 20110831
  Serious: Yes (Hospitalization)
  Sender: FDA-Public Use
  Company Number: A0905815A

PATIENT
  Age: 28 Year
  Sex: Male

DRUGS (2)
  1. NICODERM CQ [Suspect]
     Indication: SMOKING CESSATION THERAPY
     Route: 062
     Dates: start: 20100123
  2. NICODERM CQ [Suspect]
     Indication: SMOKING CESSATION THERAPY
     Route: 062
     Dates: start: 20110112, end: 20110113

REACTIONS (6)
  - VOMITING [None]
  - CHEST PAIN [None]
  - OVERDOSE [None]
  - NAUSEA [None]
  - MALAISE [None]
  - DYSPNOEA [None]
